FAERS Safety Report 13384907 (Version 9)
Quarter: 2018Q1

REPORT INFORMATION
  Report Type: Spontaneous
  Country: US (occurrence: US)
  Receive Date: 20170329
  Receipt Date: 20180326
  Transmission Date: 20180508
  Serious: No
  Sender: FDA-Public Use
  Company Number: US-PFIZER INC-2017132920

PATIENT
  Age: 79 Year
  Sex: Female
  Weight: 91.17 kg

DRUGS (25)
  1. LYRICA [Suspect]
     Active Substance: PREGABALIN
     Dosage: 75 MG, DAILY (1 CAPSULE EVERY DAY BY ORAL ROUTE FOR 90 DAYS)
     Route: 048
  2. SIMVASTATIN. [Concomitant]
     Active Substance: SIMVASTATIN
     Dosage: 25 MG, UNK
  3. COUMADIN [Concomitant]
     Active Substance: WARFARIN SODIUM
     Dosage: 5 MG ON ONLY 1/2 TABLET TUE-SUN
  4. NOVOLIN N [Concomitant]
     Active Substance: INSULIN HUMAN
     Dosage: 40 IU, UNK, (BED ONLY)
     Route: 058
  5. LASIX [Concomitant]
     Active Substance: FUROSEMIDE
     Dosage: 40 MG, DAILY
  6. LYRICA [Suspect]
     Active Substance: PREGABALIN
     Dosage: 225 MG, 1X/DAY
  7. SIMVASTATIN. [Concomitant]
     Active Substance: SIMVASTATIN
     Dosage: 20 MG, DAILY
     Route: 048
  8. METOLAZONE. [Concomitant]
     Active Substance: METOLAZONE
     Indication: WEIGHT INCREASED
     Dosage: 2.5 MG, AS NEEDED
     Route: 048
  9. LYRICA [Suspect]
     Active Substance: PREGABALIN
     Indication: NEURALGIA
     Dosage: 75 MG, 1X/DAY
     Route: 048
  10. COUMADIN [Concomitant]
     Active Substance: WARFARIN SODIUM
     Dosage: 5 MG, DAILY
     Route: 048
  11. PROAIR HFA [Concomitant]
     Active Substance: ALBUTEROL SULFATE
     Dosage: UNK, AS NEEDED, (90 MCG/ACTUATION AEROSOL INHALER)
     Route: 055
  12. LYRICA [Suspect]
     Active Substance: PREGABALIN
     Dosage: 50 MG, DAILY [1 CAPSULE(S) EVERY DAY BY ORAL ROUTE FOR 90 DAYS]
     Route: 048
  13. SOTALOL. [Concomitant]
     Active Substance: SOTALOL
     Dosage: 120 MG, 2X/DAY, (80 MG TABLET, 1.5 TWICE DAILY )
     Route: 048
     Dates: start: 2016
  14. VALIUM [Concomitant]
     Active Substance: DIAZEPAM
     Dosage: 5 MG, DAILY
     Route: 048
  15. NOVOLOG [Concomitant]
     Active Substance: INSULIN ASPART
     Dosage: UNK
     Route: 058
  16. PERFOROMIST [Concomitant]
     Active Substance: FORMOTEROL FUMARATE DIHYDRATE
     Dosage: AS NEEDED
  17. DOXYCYCLINE HYCLATE. [Concomitant]
     Active Substance: DOXYCYCLINE HYCLATE
     Dosage: 100 MG, DAILY
     Route: 048
  18. SPIRONOLACTONE. [Concomitant]
     Active Substance: SPIRONOLACTONE
     Dosage: 25 MG, DAILY
     Route: 048
  19. BUDESONIDE. [Concomitant]
     Active Substance: BUDESONIDE
     Dosage: UNK, AS NEEDED
  20. COLCHICINE. [Concomitant]
     Active Substance: COLCHICINE
     Indication: GOUT
     Dosage: 0.6 MG, AS NEEDED
  21. LYRICA [Suspect]
     Active Substance: PREGABALIN
     Indication: NEUROPATHY PERIPHERAL
     Dosage: 75 MG, 1X/DAY
     Dates: start: 2016
  22. LYRICA [Suspect]
     Active Substance: PREGABALIN
     Dosage: 50 MG, 1X/DAY
     Route: 048
  23. LYRICA [Suspect]
     Active Substance: PREGABALIN
     Dosage: 75 MG, 1X/DAY
  24. SIMETHICONE (DIMETHICONE) [Concomitant]
     Active Substance: DIMETHICONE
     Dosage: 180 MG, AS NEEDED
  25. LOSARTAN. [Concomitant]
     Active Substance: LOSARTAN
     Dosage: 12.5 MG, DAILY, (25 MG, 1/2 TAB)

REACTIONS (6)
  - Nasopharyngitis [Recovering/Resolving]
  - Oropharyngeal pain [Recovered/Resolved]
  - Arthralgia [Unknown]
  - Drug effect incomplete [Unknown]
  - Product storage error [Unknown]
  - Pain in extremity [Recovered/Resolved]

NARRATIVE: CASE EVENT DATE: 201705
